FAERS Safety Report 6116382-9 (Version None)
Quarter: 2009Q1

REPORT INFORMATION
  Report Type: 
  Country: None (occurrence: None)
  Receive Date: 20090314
  Receipt Date: 20081217
  Transmission Date: 20090719
  Serious: No
  Sender: FDA-Public Use
  Company Number: US-ABBOTT-08P-163-0491986-00

PATIENT
  Sex: Female
  Weight: 93.524 kg

DRUGS (8)
  1. HUMIRA [Suspect]
     Indication: CROHN'S DISEASE
     Route: 058
     Dates: start: 20080827, end: 20080827
  2. HUMIRA [Suspect]
     Route: 058
     Dates: start: 20080910, end: 20080910
  3. HUMIRA [Suspect]
     Route: 058
     Dates: start: 20080924
  4. TOLTERODINE [Concomitant]
     Indication: URINARY INCONTINENCE
  5. POTASSIUM CHLORIDE [Concomitant]
     Indication: BLOOD POTASSIUM DECREASED
  6. CONJUGATED ESTROGENS [Concomitant]
     Indication: DRUG USE FOR UNKNOWN INDICATION
  7. HYDROCHLOROTHIAZIDE [Concomitant]
     Indication: HYPERTENSION
     Route: 048
  8. ASOCOL [Concomitant]
     Indication: DRUG USE FOR UNKNOWN INDICATION
     Route: 048

REACTIONS (1)
  - DRUG DELIVERY SYSTEM MALFUNCTION [None]
